FAERS Safety Report 4477143-X (Version None)
Quarter: 2004Q4

REPORT INFORMATION
  Report Type: 
  Country: None (occurrence: None)
  Receive Date: 20041018
  Receipt Date: 20041008
  Transmission Date: 20050328
  Serious: Yes (Other)
  Sender: FDA-Public Use
  Company Number: US-MERCK-0410USA01743

PATIENT

DRUGS (2)
  1. ELSPAR [Suspect]
     Indication: ACUTE LEUKAEMIA
     Route: 065
  2. CYTARABINE [Concomitant]
     Indication: ACUTE LEUKAEMIA
     Route: 065

REACTIONS (1)
  - CEREBRAL INFARCTION [None]
